FAERS Safety Report 4802813-0 (Version None)
Quarter: 2005Q4

REPORT INFORMATION
  Report Type: 
  Country: None (occurrence: None)
  Receive Date: 20051019
  Receipt Date: 20051006
  Transmission Date: 20060501
  Serious: Yes (Hospitalization)
  Sender: FDA-Public Use
  Company Number: JP-BOEHRINGER INGELHEIM PHARMACEUTICALS, INC.-2005-BP-17886NB

PATIENT
  Sex: Female
  Weight: 62 kg

DRUGS (8)
  1. MICARDIS [Suspect]
     Indication: HYPERTENSION
     Route: 048
  2. DAONIL [Suspect]
     Indication: DIABETES MELLITUS
     Route: 048
     Dates: end: 20051003
  3. ACTOS [Suspect]
     Indication: DIABETES MELLITUS
     Route: 048
     Dates: end: 20051003
  4. ACECOL [Concomitant]
     Indication: HYPERTENSION
     Route: 048
     Dates: start: 20050915
  5. BUFFERIN [Concomitant]
     Indication: MYOCARDIAL INFARCTION
     Route: 048
  6. SELOKEN [Concomitant]
     Indication: HYPERTENSION
     Route: 048
  7. CRESTOR [Concomitant]
     Indication: HYPERLIPIDAEMIA
     Route: 048
     Dates: start: 20050922
  8. PANALDINE [Concomitant]
     Indication: MYOCARDIAL INFARCTION
     Route: 048
     Dates: start: 20050913

REACTIONS (2)
  - HYPOGLYCAEMIA [None]
  - POST PROCEDURAL COMPLICATION [None]
